FAERS Safety Report 20861563 (Version 1)
Quarter: 2022Q2

REPORT INFORMATION
  Report Type: Spontaneous
  Country: FR (occurrence: FR)
  Receive Date: 20220523
  Receipt Date: 20220523
  Transmission Date: 20220721
  Serious: Yes (Other)
  Sender: FDA-Public Use
  Company Number: None

PATIENT
  Age: 56 Year
  Sex: Female
  Weight: 60 kg

DRUGS (3)
  1. ESTRADIOL [Suspect]
     Active Substance: ESTRADIOL
     Indication: Menopause
     Dosage: 25 MICROGRAM, QD
     Route: 062
  2. LEVOTHYROXINE [Concomitant]
     Active Substance: LEVOTHYROXINE
     Dosage: UNK
  3. Estima [Concomitant]
     Indication: Menopause
     Dosage: 12 DOSAGE FORM, MONTHLY (12 CP PAR MOIS 1/J )
     Route: 048

REACTIONS (1)
  - Hypercholesterolaemia [Not Recovered/Not Resolved]
